FAERS Safety Report 5192045-1 (Version None)
Quarter: 2006Q4

REPORT INFORMATION
  Report Type: 
  Country: None (occurrence: None)
  Receive Date: 20061220
  Receipt Date: 20061207
  Transmission Date: 20070319
  Serious: Yes (Hospitalization, Other)
  Sender: FDA-Public Use
  Company Number: 2006147129

PATIENT
  Age: 56 Year
  Sex: Female
  Weight: 57 kg

DRUGS (7)
  1. SU-011,248 (SUNITINIB MALATE) [Suspect]
     Indication: METASTATIC RENAL CELL CARCINOMA
     Dosage: 37.5 MG (37.5 MG, 1 IN 1 D), ORAL
     Route: 048
     Dates: start: 20060522, end: 20061126
  2. GABAPENTIN [Concomitant]
  3. MORPHINE [Concomitant]
  4. BROMAZEPAM (BROMAZEPAM) [Concomitant]
  5. OMEPRAZOLE [Concomitant]
  6. BROMOPRIDE (BROMOPRIDE) [Concomitant]
  7. LEVOTHYROXINE SODIUM [Concomitant]

REACTIONS (6)
  - COMPUTERISED TOMOGRAM ABNORMAL [None]
  - CONVULSION [None]
  - DEPRESSED LEVEL OF CONSCIOUSNESS [None]
  - LEUKOENCEPHALOPATHY [None]
  - NODULE [None]
  - SOMNOLENCE [None]
